FAERS Safety Report 20937512 (Version 2)
Quarter: 2022Q2

REPORT INFORMATION
  Report Type: Spontaneous
  Country: US (occurrence: US)
  Receive Date: 20220609
  Receipt Date: 20220609
  Transmission Date: 20220721
  Serious: No
  Sender: FDA-Public Use
  Company Number: US-SPECGX-T202102565

PATIENT
  Sex: Male
  Weight: 132 kg

DRUGS (1)
  1. ACETAMINOPHEN\HYDROCODONE [Suspect]
     Active Substance: ACETAMINOPHEN\HYDROCODONE
     Indication: Back pain
     Dosage: (TWO AND A HALF TABLET ONCE A DAY AT NIGHT)
     Route: 048

REACTIONS (5)
  - Discomfort [Not Recovered/Not Resolved]
  - Overweight [Unknown]
  - Withdrawal syndrome [Not Recovered/Not Resolved]
  - Expired product administered [Unknown]
  - Drug ineffective [Not Recovered/Not Resolved]

NARRATIVE: CASE EVENT DATE: 20210101
